FAERS Safety Report 22110918 (Version 1)
Quarter: 2023Q1

REPORT INFORMATION
  Report Type: Spontaneous
  Country: AU (occurrence: None)
  Receive Date: 20230317
  Receipt Date: 20230317
  Transmission Date: 20230417
  Serious: Yes (Other)
  Sender: FDA-Public Use
  Company Number: 2023A062358

PATIENT
  Age: 70 Year
  Sex: Female

DRUGS (12)
  1. FASLODEX [Suspect]
     Active Substance: FULVESTRANT
     Route: 030
  2. FASLODEX [Suspect]
     Active Substance: FULVESTRANT
     Route: 030
  3. ANASTROZOLE [Suspect]
     Active Substance: ANASTROZOLE
  4. PALBOCICLIB [Suspect]
     Active Substance: PALBOCICLIB
     Route: 048
  5. RIBOCICLIB [Suspect]
     Active Substance: RIBOCICLIB
     Route: 048
  6. ABRAXANE [Suspect]
     Active Substance: PACLITAXEL
  7. DENOSUMAB [Suspect]
     Active Substance: DENOSUMAB
  8. CAPECITABINE [Suspect]
     Active Substance: CAPECITABINE
  9. LETROZOLE [Suspect]
     Active Substance: LETROZOLE
  10. VINORELBINE [Suspect]
     Active Substance: VINORELBINE TARTRATE
  11. ASPIRIN [Concomitant]
     Active Substance: ASPIRIN
  12. CALCIUM [Concomitant]
     Active Substance: CALCIUM

REACTIONS (10)
  - Breast cancer [Unknown]
  - Gene mutation [Unknown]
  - Metastases to bone [Unknown]
  - Pulmonary embolism [Unknown]
  - Burning sensation [Unknown]
  - Joint stiffness [Unknown]
  - Nail avulsion [Unknown]
  - Pleural effusion [Unknown]
  - Mouth ulceration [Unknown]
  - Rash [Unknown]
